FAERS Safety Report 15606058 (Version 1)
Quarter: 2018Q4

REPORT INFORMATION
  Report Type: Other
  Country: IT (occurrence: IT)
  Receive Date: 20181112
  Receipt Date: 20181112
  Transmission Date: 20190205
  Serious: Yes (Death)
  Sender: FDA-Public Use
  Company Number: IT-ACTELION-A-CH2018-181180

PATIENT
  Age: 77 Year
  Sex: Female

DRUGS (1)
  1. EPOPROSTENOL SODIUM. [Suspect]
     Active Substance: EPOPROSTENOL SODIUM
     Indication: PULMONARY HYPERTENSION
     Route: 042

REACTIONS (1)
  - Angiosarcoma [Fatal]
